FAERS Safety Report 7489275-2 (Version None)
Quarter: 2011Q2

REPORT INFORMATION
  Report Type: 
  Country: None (occurrence: None)
  Receive Date: 20110518
  Receipt Date: 20110513
  Transmission Date: 20111010
  Serious: Yes (Other)
  Sender: FDA-Public Use
  Company Number: PT-PFIZER INC-2011102998

PATIENT
  Age: 68 Year
  Sex: Female

DRUGS (2)
  1. METAMIZOLE MAGNESIUM [Concomitant]
     Dosage: UNK
  2. LYRICA [Suspect]
     Indication: SCIATICA
     Dosage: 50 MG, 1X/DAY
     Route: 048

REACTIONS (1)
  - TOXIC SKIN ERUPTION [None]
